FAERS Safety Report 9218142 (Version 2)
Quarter: 2013Q2

REPORT INFORMATION
  Report Type: Spontaneous
  Country: US (occurrence: US)
  Receive Date: 20130408
  Receipt Date: 20130517
  Transmission Date: 20140414
  Serious: No
  Sender: FDA-Public Use
  Company Number: US-B.I. PHARMACEUTICALS,INC./RIDGEFIELD-2013-BI-09338BP

PATIENT
  Sex: Male
  Weight: 109 kg

DRUGS (2)
  1. COMBIVENT [Suspect]
     Indication: PULMONARY HYPERTENSION
     Dosage: STRENGTH-18 MCG / 103 MCG,DAILY DOSE-72MCG/412MCG
     Route: 055
     Dates: start: 1999, end: 2011
  2. COMBIVENT [Suspect]
     Dosage: STRENGTH-18 MCG / 103 MCG ,DAILY DOSE-144MCG/824MCG
     Route: 055
     Dates: start: 2011

REACTIONS (3)
  - Dyspnoea [Not Recovered/Not Resolved]
  - Pulmonary fibrosis [Not Recovered/Not Resolved]
  - Chronic obstructive pulmonary disease [Not Recovered/Not Resolved]
